FAERS Safety Report 5009169-1 (Version None)
Quarter: 2006Q2

REPORT INFORMATION
  Report Type: 
  Country: None (occurrence: None)
  Receive Date: 20060518
  Receipt Date: 20060509
  Transmission Date: 20061013
  Serious: Yes (Hospitalization)
  Sender: FDA-Public Use
  Company Number: 200610514BWH

PATIENT
  Age: 78 Year
  Sex: Male
  Weight: 91.6266 kg

DRUGS (7)
  1. SORAFENIB [Suspect]
     Indication: METASTATIC RENAL CELL CARCINOMA
     Dosage: SEE IMAGE
     Route: 048
     Dates: start: 20051201, end: 20060111
  2. SORAFENIB [Suspect]
     Indication: METASTATIC RENAL CELL CARCINOMA
     Dosage: SEE IMAGE
     Route: 048
     Dates: start: 20060114
  3. SORAFENIB [Suspect]
     Indication: METASTATIC RENAL CELL CARCINOMA
     Dosage: SEE IMAGE
     Route: 048
     Dates: start: 20060202
  4. SORAFENIB [Suspect]
     Indication: METASTATIC RENAL CELL CARCINOMA
     Dosage: SEE IMAGE
     Route: 048
     Dates: start: 20060401
  5. BLOOD PRESSURE MEDICATION [Concomitant]
  6. CHOLESTEROL DRUG [Concomitant]
  7. NITRO [Concomitant]

REACTIONS (7)
  - ANOREXIA [None]
  - DIZZINESS [None]
  - HAEMORRHAGE [None]
  - LOSS OF CONSCIOUSNESS [None]
  - PAIN [None]
  - PAIN IN EXTREMITY [None]
  - URINARY RETENTION [None]
